FAERS Safety Report 24868153 (Version 1)
Quarter: 2025Q1

REPORT INFORMATION
  Report Type: Spontaneous
  Country: US (occurrence: None)
  Receive Date: 20250119
  Receipt Date: 20250119
  Transmission Date: 20250409
  Serious: Yes (Hospitalization, Other)
  Sender: FDA-CTU
  Company Number: None

PATIENT
  Age: 30 Year
  Sex: Female
  Weight: 103.95 kg

DRUGS (5)
  1. CYCLOBENZAPRINE [Suspect]
     Active Substance: CYCLOBENZAPRINE
     Indication: Muscle spasms
     Dosage: 3 TIMES A DAY ORAL
     Route: 048
     Dates: start: 20250119, end: 20250119
  2. WEGOVY [Concomitant]
     Active Substance: SEMAGLUTIDE
  3. LEVOTHYROXINE [Concomitant]
     Active Substance: LEVOTHYROXINE
  4. VERAPAMIL [Concomitant]
     Active Substance: VERAPAMIL HYDROCHLORIDE
  5. VENLAFAXINE [Concomitant]
     Active Substance: VENLAFAXINE HYDROCHLORIDE

REACTIONS (9)
  - Paraesthesia oral [None]
  - Dizziness [None]
  - Palpitations [None]
  - Dyspnoea [None]
  - Tongue disorder [None]
  - Throat tightness [None]
  - Ocular discomfort [None]
  - Eye pruritus [None]
  - Agitation [None]

NARRATIVE: CASE EVENT DATE: 20250119
